FAERS Safety Report 4309068-4 (Version None)
Quarter: 2004Q1

REPORT INFORMATION
  Report Type: 
  Country: None (occurrence: None)
  Receive Date: 20040301
  Receipt Date: 20040218
  Transmission Date: 20041129
  Serious: Yes (Hospitalization)
  Sender: FDA-Public Use
  Company Number: HQWYE186420FEB04

PATIENT
  Age: 62 Year
  Sex: Female

DRUGS (2)
  1. PREMELLE CYCLIC (CONJUGATED ESTROGENS/MEDROXYPROGESTERONE ACETATE, TAB [Suspect]
     Indication: HORMONE REPLACEMENT THERAPY
     Dosage: 1 TABLET DAILY, ORAL
     Route: 048
     Dates: start: 20040101
  2. PROPRANOLOL [Concomitant]

REACTIONS (3)
  - BLOOD PRESSURE INCREASED [None]
  - DIZZINESS [None]
  - VISUAL DISTURBANCE [None]
